FAERS Safety Report 18618899 (Version 1)
Quarter: 2020Q4

REPORT INFORMATION
  Report Type: Spontaneous
  Country: US (occurrence: US)
  Receive Date: 20201215
  Receipt Date: 20201215
  Transmission Date: 20210114
  Serious: No
  Sender: FDA-Public Use
  Company Number: US-SUPERNUS PHARMACEUTICALS, INC.-2019SUP00539

PATIENT
  Sex: Female
  Weight: 53.06 kg

DRUGS (13)
  1. OXTELLAR XR [Suspect]
     Active Substance: OXCARBAZEPINE
     Indication: BRAIN NEOPLASM
  2. OXTELLAR XR [Suspect]
     Active Substance: OXCARBAZEPINE
     Indication: BRAIN NEOPLASM
     Dosage: 300 MG, 1X/DAY IN THE EVENING
     Route: 048
     Dates: start: 2019
  3. OSTEO BI-FLEX WITH VITAMIN D [Concomitant]
  4. OXTELLAR XR [Suspect]
     Active Substance: OXCARBAZEPINE
     Indication: TRIGEMINAL NEURALGIA
     Dosage: UNK
     Route: 048
     Dates: start: 2019, end: 2019
  5. DILANTIN [Concomitant]
     Active Substance: PHENYTOIN
     Dosage: ^WEANING OFF AND WEANING ON OXTELLAR XR^
  6. MULTIVITAMIN 50+ [Concomitant]
  7. OXTELLAR XR [Suspect]
     Active Substance: OXCARBAZEPINE
     Indication: TRIGEMINAL NEURALGIA
     Dosage: 600 MG, 1X/DAY IN THE MORNING AT 6 AM
     Route: 048
     Dates: start: 2019
  8. OXTELLAR XR [Suspect]
     Active Substance: OXCARBAZEPINE
     Indication: BRAIN NEOPLASM
  9. CBD OIL [Concomitant]
     Active Substance: CANNABIDIOL\HERBALS
     Dosage: 1 DOSAGE UNITS (DROPPER), 2X/DAY
  10. KRILL OIL [Concomitant]
     Active Substance: DIETARY SUPPLEMENT\KRILL OIL
  11. LUTEIN [Concomitant]
     Active Substance: LUTEIN
  12. CETIRIZINE HYDROCHLORIDE. [Concomitant]
     Active Substance: CETIRIZINE HYDROCHLORIDE
     Dosage: 10 MG, 1X/DAY, IN THE MORNING
  13. OXTELLAR XR [Suspect]
     Active Substance: OXCARBAZEPINE
     Indication: TRIGEMINAL NEURALGIA
     Dosage: UNK ^SAMPLES^
     Route: 048
     Dates: start: 2019, end: 2019

REACTIONS (4)
  - Facial pain [Recovered/Resolved]
  - Trigeminal neuralgia [Recovered/Resolved]
  - Off label use [Not Recovered/Not Resolved]
  - Stress [Not Recovered/Not Resolved]

NARRATIVE: CASE EVENT DATE: 2019
